FAERS Safety Report 16864257 (Version 1)
Quarter: 2019Q3

REPORT INFORMATION
  Report Type: Spontaneous
  Country: US (occurrence: US)
  Receive Date: 20190927
  Receipt Date: 20190927
  Transmission Date: 20191005
  Serious: No
  Sender: FDA-Public Use
  Company Number: US-TEVA-2019-US-1114167

PATIENT

DRUGS (1)
  1. PROAIR RESPICLICK [Suspect]
     Active Substance: ALBUTEROL SULFATE
     Indication: BRONCHIAL HYPERREACTIVITY
     Dosage: POWDER AS NEEDED
     Route: 055

REACTIONS (2)
  - Mucosal ulceration [Recovered/Resolved]
  - Pharyngeal ulceration [Recovered/Resolved]
